FAERS Safety Report 4678935-4 (Version None)
Quarter: 2005Q2

REPORT INFORMATION
  Report Type: 
  Country: None (occurrence: None)
  Receive Date: 20050531
  Receipt Date: 20050518
  Transmission Date: 20051028
  Serious: Yes (Hospitalization)
  Sender: FDA-Public Use
  Company Number: 2005076662

PATIENT
  Age: 75 Year
  Sex: Female
  Weight: 86.1834 kg

DRUGS (10)
  1. DETROL LA [Suspect]
     Indication: POLLAKIURIA
     Dosage: 4 MG (4 MG, 1 IN 1 D), ORAL
     Route: 048
  2. ASPIRIN [Concomitant]
  3. LIPITOR [Concomitant]
  4. ACTOS [Concomitant]
  5. GLIPIZIDE [Concomitant]
  6. LORZEPAM) [Concomitant]
  7. QUINAPRIL (QUINAPRIL HYDROCHLORIDE) [Concomitant]
  8. TRIAMTEREN 9TRIAMTERENE) [Concomitant]
  9. PRILOSEC (OEMPRAZOLE) [Concomitant]
  10. LORATADINE [Concomitant]

REACTIONS (8)
  - ANXIETY [None]
  - CARDIAC PACEMAKER INSERTION [None]
  - DRY MOUTH [None]
  - HYPOAESTHESIA [None]
  - INCREASED UPPER AIRWAY SECRETION [None]
  - NAUSEA [None]
  - TONGUE DISORDER [None]
  - WEIGHT DECREASED [None]
